FAERS Safety Report 4957400-0 (Version None)
Quarter: 2006Q1

REPORT INFORMATION
  Report Type: 
  Country: None (occurrence: None)
  Receive Date: 20060327
  Receipt Date: 20060313
  Transmission Date: 20060701
  Serious: Yes (Other)
  Sender: FDA-Public Use
  Company Number: 2006US-01783

PATIENT
  Age: 37 Year
  Sex: Female

DRUGS (6)
  1. ISOTRETINOIN [Suspect]
     Dosage: 10 MG, BID, ORAL
     Route: 048
     Dates: start: 20060107, end: 20060201
  2. ISOTRETINOIN [Suspect]
     Dosage: 40 MG, BID, ORAL
     Route: 048
  3. NORVASC [Concomitant]
  4. NORTRIPTYLINE HCL [Concomitant]
  5. PROTONIX [Concomitant]
  6. HYDROCHLOROTHIAZIDE [Concomitant]

REACTIONS (10)
  - AGGRESSION [None]
  - CHAPPED LIPS [None]
  - CHEST PAIN [None]
  - CRYING [None]
  - EPISTAXIS [None]
  - LIP HAEMORRHAGE [None]
  - PHYSICAL ASSAULT [None]
  - RASH PRURITIC [None]
  - SOMNOLENCE [None]
  - VOMITING [None]
